FAERS Safety Report 15673327 (Version 1)
Quarter: 2018Q4

REPORT INFORMATION
  Report Type: Spontaneous
  Country: FR (occurrence: FR)
  Receive Date: 20181129
  Receipt Date: 20181129
  Transmission Date: 20190205
  Serious: Yes (Other)
  Sender: FDA-Public Use
  Company Number: FR-ELI_LILLY_AND_COMPANY-FR201811012441

PATIENT
  Age: 79 Year
  Sex: Female

DRUGS (19)
  1. L THYROXIN HENNING [Concomitant]
     Active Substance: LEVOTHYROXINE SODIUM
     Indication: HYPOTHYROIDISM
     Dosage: 50 MG, EACH MORNING
  2. CYMBALTA [Suspect]
     Active Substance: DULOXETINE HYDROCHLORIDE
     Indication: DIABETIC NEUROPATHY
     Dosage: 30 MG, EACH EVENING
     Route: 065
     Dates: start: 201810
  3. HUMALOG [Suspect]
     Active Substance: INSULIN LISPRO
     Indication: PRODUCT USED FOR UNKNOWN INDICATION
     Dosage: 5 IU, EACH MORNING
     Route: 065
     Dates: start: 2003
  4. LANTUS [Concomitant]
     Active Substance: INSULIN GLARGINE
     Dosage: 4 IU, EACH EVENING
  5. XANAX [Concomitant]
     Active Substance: ALPRAZOLAM
     Indication: PRODUCT USED FOR UNKNOWN INDICATION
     Dosage: UNK, PRN
  6. LANTUS [Concomitant]
     Active Substance: INSULIN GLARGINE
     Indication: DIABETES MELLITUS
     Dosage: 8 IU, EACH MORNING
     Dates: start: 20180620
  7. RED RICE [Concomitant]
     Indication: BLOOD URIC ACID ABNORMAL
  8. LEXOMIL [Concomitant]
     Active Substance: BROMAZEPAM
     Indication: INSOMNIA
  9. DEBRIDAT A.P. [Concomitant]
     Indication: ABDOMINAL PAIN UPPER
  10. NERISONE [Concomitant]
     Active Substance: DIFLUCORTOLONE VALERATE
     Indication: ECZEMA
  11. LASILIX FAIBLE [Concomitant]
     Active Substance: FUROSEMIDE
     Indication: CHRONIC KIDNEY DISEASE
     Dosage: 20 MG, MORNING AND EVENING
  12. ZOLTUM PLUS [Concomitant]
     Indication: ABDOMINAL PAIN UPPER
     Dosage: 20 MG, UNK
  13. ZYLORIC [Concomitant]
     Active Substance: ALLOPURINOL
     Indication: BLOOD URIC ACID ABNORMAL
     Dosage: 100 MG, UNK
  14. TOUJEO [Concomitant]
     Active Substance: INSULIN GLARGINE
     Indication: PRODUCT USED FOR UNKNOWN INDICATION
     Dosage: UNK
     Dates: start: 20180513, end: 20180619
  15. CYMBALTA [Suspect]
     Active Substance: DULOXETINE HYDROCHLORIDE
     Dosage: 30 MG, QOD
     Route: 065
     Dates: start: 20181120
  16. HUMALOG [Suspect]
     Active Substance: INSULIN LISPRO
     Dosage: 5 IU, AT NOON
     Route: 065
     Dates: start: 2003
  17. SPASFON LYOC [Concomitant]
     Active Substance: PHLOROGLUCINOL
     Indication: ABDOMINAL PAIN UPPER
  18. HUMALOG [Suspect]
     Active Substance: INSULIN LISPRO
     Dosage: 4 IU, EACH EVENING
     Route: 065
     Dates: start: 2003
  19. MESCALINE [Concomitant]
     Active Substance: MESCALINE
     Indication: MUSCLE SPASMS

REACTIONS (32)
  - Pain in extremity [Unknown]
  - Epistaxis [Unknown]
  - Diarrhoea [Unknown]
  - Decreased appetite [Unknown]
  - Burning sensation [Unknown]
  - Acne [Unknown]
  - Muscle spasms [Unknown]
  - Tremor [Unknown]
  - Fatigue [Unknown]
  - Palpitations [Unknown]
  - Rotator cuff syndrome [Unknown]
  - Dizziness [Unknown]
  - Micturition disorder [Unknown]
  - Feeling of body temperature change [Unknown]
  - Abdominal pain upper [Unknown]
  - Fall [Unknown]
  - Upper limb fracture [Unknown]
  - Mastoiditis [Unknown]
  - Blood glucose decreased [Unknown]
  - Urinary retention [Unknown]
  - Balance disorder [Unknown]
  - Feeling drunk [Unknown]
  - Diabetes mellitus inadequate control [Unknown]
  - Tinnitus [Unknown]
  - Nausea [Unknown]
  - Diverticulum [Unknown]
  - Eczema [Unknown]
  - Eye pain [Unknown]
  - Insomnia [Unknown]
  - Blood pressure abnormal [Unknown]
  - Pain [Unknown]
  - Constipation [Unknown]

NARRATIVE: CASE EVENT DATE: 2007
